FAERS Safety Report 7908412-6 (Version None)
Quarter: 2011Q4

REPORT INFORMATION
  Report Type: 
  Country: None (occurrence: None)
  Receive Date: 20111111
  Receipt Date: 20111103
  Transmission Date: 20120403
  Serious: Yes (Other)
  Sender: FDA-Public Use
  Company Number: US-JNJFOC-20111001573

PATIENT
  Sex: Female
  Weight: 74.84 kg

DRUGS (1)
  1. SIMPONI [Suspect]
     Indication: PSORIATIC ARTHROPATHY
     Route: 058
     Dates: start: 20110501

REACTIONS (8)
  - PRODUCT QUALITY ISSUE [None]
  - DISEASE RECURRENCE [None]
  - PALPITATIONS [None]
  - DRUG DOSE OMISSION [None]
  - DEVICE FAILURE [None]
  - PSORIASIS [None]
  - PYREXIA [None]
  - BRONCHITIS [None]
